FAERS Safety Report 6632340-X (Version None)
Quarter: 2010Q1

REPORT INFORMATION
  Report Type: 
  Country: None (occurrence: None)
  Receive Date: 20100312
  Receipt Date: 20100308
  Transmission Date: 20100710
  Serious: Yes (Hospitalization)
  Sender: FDA-Public Use
  Company Number: D0066270A

PATIENT
  Sex: Male
  Weight: 56 kg

DRUGS (2)
  1. LAMICTAL [Suspect]
     Indication: EPILEPSY
     Dosage: 225MG TWICE PER DAY
     Route: 048
  2. KEPPRA [Concomitant]
     Dosage: 1000MG TWICE PER DAY
     Route: 048

REACTIONS (7)
  - ANGIOEDEMA [None]
  - BLOOD LACTATE DEHYDROGENASE INCREASED [None]
  - LIP SWELLING [None]
  - OBESITY [None]
  - PRURITUS [None]
  - RASH GENERALISED [None]
  - URTICARIA CHRONIC [None]
